FAERS Safety Report 25297377 (Version 1)
Quarter: 2025Q2

REPORT INFORMATION
  Report Type: Spontaneous
  Country: US (occurrence: US)
  Receive Date: 20250511
  Receipt Date: 20250511
  Transmission Date: 20250716
  Serious: No
  Sender: SANOFI AVENTIS
  Company Number: US-SA-2025SA134337

PATIENT
  Age: 38 Year
  Sex: Female

DRUGS (7)
  1. DUPIXENT [Suspect]
     Active Substance: DUPILUMAB
     Indication: Dermatitis atopic
     Route: 058
     Dates: start: 20210331
  2. PROGESTERONE [Concomitant]
     Active Substance: PROGESTERONE
  3. NORETHINDRONE [Concomitant]
     Active Substance: NORETHINDRONE
  4. BERBERINE [Concomitant]
     Active Substance: BERBERINE
  5. VITAMINS [Concomitant]
     Active Substance: VITAMINS
  6. 3,3^-DIINDOLYLMETHANE [Concomitant]
     Active Substance: 3,3^-DIINDOLYLMETHANE
  7. PIPER METHYSTICUM ROOT [Concomitant]
     Active Substance: PIPER METHYSTICUM ROOT

REACTIONS (2)
  - Rosacea [Unknown]
  - Eczema [Unknown]

NARRATIVE: CASE EVENT DATE: 20250506
